FAERS Safety Report 15675577 (Version 3)
Quarter: 2018Q4

REPORT INFORMATION
  Report Type: Spontaneous
  Country: JP (occurrence: JP)
  Receive Date: 20181130
  Receipt Date: 20181231
  Transmission Date: 20190205
  Serious: Yes (Other)
  Sender: FDA-Public Use
  Company Number: JP-009507513-1811JPN002680J

PATIENT

DRUGS (1)
  1. KEYTRUDA [Suspect]
     Active Substance: PEMBROLIZUMAB
     Indication: NON-SMALL CELL LUNG CANCER
     Dosage: UNK
     Route: 041

REACTIONS (3)
  - Interstitial lung disease [Unknown]
  - Neuropathy peripheral [Unknown]
  - Rash [Unknown]
